FAERS Safety Report 9631907 (Version 1)
Quarter: 2013Q4

REPORT INFORMATION
  Report Type: Spontaneous
  Country: SG (occurrence: None)
  Receive Date: 20131015
  Receipt Date: 20131015
  Transmission Date: 20140711
  Serious: Yes (Hospitalization)
  Sender: FDA-Public Use
  Company Number: SG-20130004

PATIENT
  Age: 53 Year
  Sex: Female

DRUGS (1)
  1. DOTAREM (GADOTERIC ACID), 13GD044B [Suspect]
     Indication: NUCLEAR MAGNETIC RESONANCE IMAGING BRAIN
     Dosage: 1 IN 1 D
     Route: 040
     Dates: start: 20130926, end: 20130926

REACTIONS (4)
  - Dyspnoea [None]
  - Tachycardia [None]
  - Urticaria [None]
  - Angioedema [None]
